FAERS Safety Report 9148592 (Version 2)
Quarter: 2013Q2

REPORT INFORMATION
  Report Type: Spontaneous
  Country: US (occurrence: US)
  Receive Date: 20130308
  Receipt Date: 20130402
  Transmission Date: 20140414
  Serious: Yes (Other)
  Sender: FDA-Public Use
  Company Number: US-PERRIGO-13US002115

PATIENT
  Age: 45 Year
  Sex: Male
  Weight: 90.7 kg

DRUGS (5)
  1. DIPHENHYDRAMINE HYDROCHLORIDE [Suspect]
     Indication: INSOMNIA
     Dosage: 50 MG, SINGLE
     Route: 048
     Dates: start: 20130216, end: 20130216
  2. DIPHENHYDRAMINE HYDROCHLORIDE [Suspect]
     Dosage: 50 MG, PRN
     Route: 048
     Dates: start: 2013, end: 2013
  3. ALCOHOL [Suspect]
     Indication: PRODUCT USED FOR UNKNOWN INDICATION
     Dosage: 2 SHOTS OF VODKA
     Route: 048
     Dates: start: 20130216, end: 20130216
  4. MELATONIN [Concomitant]
     Indication: INSOMNIA
     Dosage: 2 DF AT BEDTIME
     Route: 048
     Dates: start: 20130216, end: 20130216
  5. ASPIRIN [Concomitant]
     Indication: PROPHYLAXIS
     Dosage: 325 MG DAILY
     Route: 048
     Dates: start: 20130216, end: 20130216

REACTIONS (6)
  - Memory impairment [Recovered/Resolved]
  - Aggression [Recovered/Resolved]
  - Incoherent [Recovered/Resolved]
  - Consciousness fluctuating [Recovered/Resolved]
  - Somnolence [Recovered/Resolved]
  - Dysarthria [Recovered/Resolved]
